FAERS Safety Report 14806874 (Version 2)
Quarter: 2018Q2

REPORT INFORMATION
  Report Type: Spontaneous
  Country: US (occurrence: US)
  Receive Date: 20180425
  Receipt Date: 20180605
  Transmission Date: 20180711
  Serious: Yes (Disabling, Congenital Anomaly)
  Sender: FDA-Public Use
  Company Number: US-ROCHE-2072184

PATIENT
  Age: 68 Year
  Sex: Female
  Weight: 70.82 kg

DRUGS (6)
  1. OCREVUS [Suspect]
     Active Substance: OCRELIZUMAB
     Indication: SECONDARY PROGRESSIVE MULTIPLE SCLEROSIS
     Dosage: EVERY 6 MONTHS ;ONGOING: YES (RECEIVED ON: 23/MAY/2018)
     Route: 065
     Dates: start: 20171121
  2. ZANTAC [Concomitant]
     Active Substance: RANITIDINE HYDROCHLORIDE
     Dosage: PRN
     Route: 048
     Dates: start: 201802
  3. NALTREXONE [Concomitant]
     Active Substance: NALTREXONE
     Route: 048
     Dates: start: 201804
  4. BABY ASA [Concomitant]
     Active Substance: ASPIRIN
     Dosage: 2 TAB HS
     Route: 065
  5. ELIQUIS [Concomitant]
     Active Substance: APIXABAN
     Route: 065
     Dates: end: 20180304
  6. CLARITIN [Concomitant]
     Active Substance: LORATADINE
     Dosage: DAILY
     Route: 048

REACTIONS (9)
  - Visual impairment [Unknown]
  - Arthropathy [Unknown]
  - Strabismus [Recovered/Resolved]
  - Migraine with aura [Recovered/Resolved]
  - Ear pain [Unknown]
  - Ill-defined disorder [Unknown]
  - Cough [Unknown]
  - Depression [Unknown]
  - Anxiety [Unknown]

NARRATIVE: CASE EVENT DATE: 20180202
